FAERS Safety Report 9114116 (Version 4)
Quarter: 2014Q1

REPORT INFORMATION
  Report Type: Spontaneous
  Country: US (occurrence: US)
  Receive Date: 20130209
  Receipt Date: 20140205
  Transmission Date: 20141002
  Serious: Yes (Hospitalization)
  Sender: FDA-Public Use
  Company Number: US-B.I. PHARMACEUTICALS,INC./RIDGEFIELD-2013-BI-03121BP

PATIENT
  Age: 76 Year
  Sex: Male
  Weight: 66 kg

DRUGS (13)
  1. PRADAXA [Suspect]
     Indication: ATRIAL FIBRILLATION
     Dosage: 300 MG
     Route: 048
     Dates: start: 20111111, end: 20111126
  2. ASPIRIN [Concomitant]
     Dosage: 325 MG
     Route: 048
  3. LISINOPRIL [Concomitant]
     Dosage: 30 MG
     Route: 048
  4. OMEPRAZOLE [Concomitant]
     Indication: GASTROOESOPHAGEAL REFLUX DISEASE
     Dosage: 20 MG
     Route: 048
  5. FLECAINIDE [Concomitant]
     Indication: ATRIAL FIBRILLATION
     Dosage: 100 MG
     Route: 048
  6. ATORVASTATIN [Concomitant]
     Indication: BLOOD CHOLESTEROL INCREASED
     Dosage: 40 MG
     Route: 048
  7. LEVOXYL [Concomitant]
     Indication: HYPOTHYROIDISM
     Route: 048
  8. CRESTOR [Concomitant]
     Dosage: 1/2 TABLET PER NIGHT
  9. HYDROCHLOROTHIAZIDE [Concomitant]
     Dosage: 25 MG
  10. ZOLPIDEM [Concomitant]
     Dosage: 1.5 TABS PER NIGHT
  11. METOPROLOL [Concomitant]
     Dosage: 25 MG
  12. CELEXA [Concomitant]
     Dosage: 10 MG
  13. ATIVAN [Concomitant]
     Dosage: AS NEEDED

REACTIONS (3)
  - Osteoarthritis [Recovered/Resolved]
  - Post procedural haemorrhage [Recovered/Resolved]
  - Postoperative abscess [Recovered/Resolved]
